FAERS Safety Report 14225340 (Version 1)
Quarter: 2017Q4

REPORT INFORMATION
  Report Type: Spontaneous
  Country: US (occurrence: US)
  Receive Date: 20171127
  Receipt Date: 20171127
  Transmission Date: 20180321
  Serious: No
  Sender: FDA-Public Use
  Company Number: US-PFIZER INC-2017505449

PATIENT
  Age: 58 Year
  Sex: Female

DRUGS (2)
  1. SULFASALAZINE. [Suspect]
     Active Substance: SULFASALAZINE
     Dosage: 500MG TABLETS, TWICE A DAY BY MOUTH
     Route: 048
  2. SULFASALAZINE. [Suspect]
     Active Substance: SULFASALAZINE
     Indication: ANTIINFLAMMATORY THERAPY
     Dosage: 500MG TABLETS, TWICE A DAY BY MOUTH
     Route: 048

REACTIONS (2)
  - Product odour abnormal [Unknown]
  - Nausea [Unknown]
